FAERS Safety Report 20291203 (Version 1)
Quarter: 2022Q1

REPORT INFORMATION
  Report Type: Spontaneous
  Country: CN (occurrence: CN)
  Receive Date: 20220104
  Receipt Date: 20220104
  Transmission Date: 20220423
  Serious: Yes (Other)
  Sender: FDA-Public Use
  Company Number: CN-BAXTER-2021BAX042541

PATIENT
  Age: 5 Year
  Sex: Male
  Weight: 19 kg

DRUGS (5)
  1. CYCLOPHOSPHAMIDE [Suspect]
     Active Substance: CYCLOPHOSPHAMIDE
     Indication: Acute lymphocytic leukaemia
     Dosage: CYCLOPHOSPHAMIDE 0.76G + (4: 1) GLUCOSE SODIUM CHLORIDE 250ML
     Route: 041
     Dates: start: 20211203, end: 20211203
  2. DEXTROSE\SODIUM CHLORIDE [Suspect]
     Active Substance: DEXTROSE\SODIUM CHLORIDE
     Indication: Medication dilution
     Dosage: CYCLOPHOSPHAMIDE 0.76G + (4: 1) GLUCOSE SODIUM CHLORIDE 250ML
     Route: 041
     Dates: start: 20211203, end: 20211203
  3. DEXTROSE\SODIUM CHLORIDE [Suspect]
     Active Substance: DEXTROSE\SODIUM CHLORIDE
     Dosage: CYTARABINE FOR INJECTION 0.76G + (4: 1) GLUCOSE SODIUM CHLORIDE 250ML
     Route: 041
     Dates: start: 20211203, end: 20211206
  4. CYTARABINE [Suspect]
     Active Substance: CYTARABINE
     Indication: Acute lymphocytic leukaemia
     Dosage: CYTARABINE FOR INJECTION 0.76G + (4: 1) GLUCOSE SODIUM CHLORIDE 250ML
     Route: 041
     Dates: start: 20211203, end: 20211206
  5. MERCAPTOPURINE [Suspect]
     Active Substance: MERCAPTOPURINE
     Indication: Acute lymphocytic leukaemia
     Dosage: QN
     Route: 048
     Dates: start: 20211203, end: 20211209

REACTIONS (1)
  - Myelosuppression [Recovering/Resolving]

NARRATIVE: CASE EVENT DATE: 20211210
